FAERS Safety Report 19814183 (Version 1)
Quarter: 2021Q3

REPORT INFORMATION
  Report Type: Spontaneous
  Country: US (occurrence: US)
  Receive Date: 20210908
  Receipt Date: 20210908
  Transmission Date: 20211014
  Serious: Yes (Death)
  Sender: FDA-Public Use
  Company Number: None

PATIENT
  Age: 64 Year
  Sex: Male
  Weight: 50.3 kg

DRUGS (1)
  1. YESCARTA [Suspect]
     Active Substance: AXICABTAGENE CILOLEUCEL

REACTIONS (11)
  - Oxygen saturation decreased [None]
  - Fatigue [None]
  - Hypotension [None]
  - Neurotoxicity [None]
  - Candida test positive [None]
  - Respiratory failure [None]
  - Encephalopathy [None]
  - Headache [None]
  - Renal failure [None]
  - Dialysis [None]
  - Hypophagia [None]

NARRATIVE: CASE EVENT DATE: 20210814
